FAERS Safety Report 23437674 (Version 3)
Quarter: 2024Q1

REPORT INFORMATION
  Report Type: Report from Study
  Country: US (occurrence: US)
  Receive Date: 20240124
  Receipt Date: 20240208
  Transmission Date: 20240410
  Serious: Yes (Hospitalization, Other)
  Sender: FDA-Public Use
  Company Number: US-ABBVIE-5597526

PATIENT
  Age: 92 Year
  Sex: Female

DRUGS (1)
  1. SKYRIZI [Suspect]
     Active Substance: RISANKIZUMAB-RZAA
     Indication: Psoriasis
     Dosage: START DATE TEXT: UNKNOWN?STOP DATE TEXT: UNKNOWN?FREQUENCY: UNKNOWN?150 MILLIGRAM
     Route: 058

REACTIONS (9)
  - Fall [Unknown]
  - Psoriasis [Recovered/Resolved]
  - Pain in extremity [Unknown]
  - Alopecia [Unknown]
  - Skin exfoliation [Recovering/Resolving]
  - Skin exfoliation [Unknown]
  - Peripheral swelling [Unknown]
  - Dermatitis exfoliative generalised [Unknown]
  - Therapeutic response shortened [Unknown]

NARRATIVE: CASE EVENT DATE: 20240119
